FAERS Safety Report 4828476-6 (Version None)
Quarter: 2005Q4

REPORT INFORMATION
  Report Type: 
  Country: None (occurrence: None)
  Receive Date: 20051110
  Receipt Date: 20051028
  Transmission Date: 20060501
  Serious: Yes (Hospitalization)
  Sender: FDA-Public Use
  Company Number: 2005123245

PATIENT
  Age: 79 Year
  Sex: Female
  Weight: 75 kg

DRUGS (28)
  1. LYRICA [Suspect]
     Indication: NEURALGIA
     Dosage: (75 MG, 2 IN 1 D), ORAL
     Route: 048
     Dates: start: 20050825, end: 20050826
  2. ACTONEL [Concomitant]
  3. AMITRIPTYLINE HCL [Concomitant]
  4. ATROVENT [Concomitant]
  5. CALTRATE (CALCIUM CARBONATE) [Concomitant]
  6. COLOXYL WITH SENNA (DOCUSATE SODIUM, SENNOSIDE A+B) [Concomitant]
  7. CRANBERRY (VACCINIUM MACROCARPON) [Concomitant]
  8. OXYCODONE HCL [Concomitant]
  9. ESTRADERM [Concomitant]
  10. FUROSEMIDE [Concomitant]
  11. GASTRO GEL [Concomitant]
  12. LACTULOSE [Concomitant]
  13. ................................ [Concomitant]
  14. MAXOLON [Concomitant]
  15. CONTIN (MORPHINE SULFATE) [Concomitant]
  16. MULTIVITAMINS WITH MINERALS (MULTIVITAMINS WITH MINERALS) [Concomitant]
  17. OMEGA-3 (OMEGA-3 TRIGLYCERIDES) [Concomitant]
  18. PANADEINE FORTE (CODEINE PHOSPHATE, PARACETAMOL) [Concomitant]
  19. PANAMAX (PARACETAMOL) [Concomitant]
  20. PANTOPRAZOLE SODIUM [Concomitant]
  21. PREDNISONE [Concomitant]
  22. QUINATE (QUININE SULFATE) [Concomitant]
  23. SERETIDE (FLUTICASONE PROPIONATE, SALMETEROL XINAFOATE) [Concomitant]
  24. SIGMACORT (HYDROCORTISONE) [Concomitant]
  25. TEMAZEPAM [Concomitant]
  26. TRANSIDERM-NITRO (GLYCERYL TRINITRATE) [Concomitant]
  27. VENTOLIN [Concomitant]
  28. VENTOLIN NEBULES PF          (SALBUTAMOL SULFATE) [Concomitant]

REACTIONS (5)
  - AGITATION [None]
  - CONVULSION [None]
  - DYSKINESIA [None]
  - INCOHERENT [None]
  - MYOCLONUS [None]
